FAERS Safety Report 14458719 (Version 1)
Quarter: 2018Q1

REPORT INFORMATION
  Report Type: Spontaneous
  Country: US (occurrence: US)
  Receive Date: 20180130
  Receipt Date: 20180130
  Transmission Date: 20180509
  Serious: Yes (Other)
  Sender: FDA-Public Use
  Company Number: US-ELI_LILLY_AND_COMPANY-US201801009096

PATIENT
  Sex: Male

DRUGS (1)
  1. CYRAMZA [Suspect]
     Active Substance: RAMUCIRUMAB
     Indication: COLORECTAL CANCER METASTATIC
     Dosage: UNK UNK, UNKNOWN
     Route: 042

REACTIONS (7)
  - Off label use [Recovered/Resolved]
  - Flushing [Recovered/Resolved]
  - Diarrhoea [Recovered/Resolved]
  - Rales [Recovered/Resolved]
  - Vomiting [Recovered/Resolved]
  - Rhinorrhoea [Recovered/Resolved]
  - Pulmonary oedema [Recovered/Resolved]
